FAERS Safety Report 10053247 (Version 1)
Quarter: 2014Q2

REPORT INFORMATION
  Report Type: Report from Study
  Country: US (occurrence: US)
  Receive Date: 20140402
  Receipt Date: 20140402
  Transmission Date: 20141212
  Serious: Yes (Other)
  Sender: FDA-Public Use
  Company Number: US-BRISTOL-MYERS SQUIBB COMPANY-20553640

PATIENT
  Age: 68 Year
  Sex: Male

DRUGS (2)
  1. ABATACEPT SUBQ INJECTION 125MG/ML [Suspect]
     Dosage: STARTED ORENCIA IV ABOUT A MONTH AGO
     Route: 058
  2. ORENCIA [Suspect]

REACTIONS (3)
  - Back disorder [Unknown]
  - Nephropathy [Unknown]
  - Arthralgia [Unknown]
